FAERS Safety Report 4617040-X (Version None)
Quarter: 2005Q1

REPORT INFORMATION
  Report Type: 
  Country: None (occurrence: None)
  Receive Date: 20050323
  Receipt Date: 20050314
  Transmission Date: 20050727
  Serious: Yes (Life-Threatening, Other)
  Sender: FDA-Public Use
  Company Number: GB-JNJFOC-20050104873

PATIENT
  Sex: Male
  Weight: 95 kg

DRUGS (6)
  1. CONCERTA [Suspect]
     Indication: ATTENTION DEFICIT/HYPERACTIVITY DISORDER
     Route: 065
  2. TEGRATOL [Concomitant]
     Indication: EPILEPSY
     Route: 065
  3. TEGRATOL [Concomitant]
     Indication: PAIN
     Route: 065
  4. CLOZAPINE [Concomitant]
     Indication: PAIN
     Route: 065
  5. MELATONIN [Concomitant]
     Indication: PAIN
     Route: 065
  6. CODEINE [Concomitant]
     Indication: PAIN
     Route: 065

REACTIONS (3)
  - AGGRESSION [None]
  - HEPATITIS [None]
  - SUICIDAL IDEATION [None]
